FAERS Safety Report 6452888-0 (Version None)
Quarter: 2009Q4

REPORT INFORMATION
  Report Type: 
  Country: None (occurrence: None)
  Receive Date: 20091124
  Receipt Date: 20090312
  Transmission Date: 20100525
  Serious: No
  Sender: FDA-Public Use
  Company Number: US-ABBOTT-09P-163-0562888-00

PATIENT
  Sex: Male

DRUGS (8)
  1. TRICOR [Suspect]
     Indication: BLOOD TRIGLYCERIDES INCREASED
     Route: 048
     Dates: start: 20080522, end: 20081120
  2. TRICOR [Suspect]
     Indication: HYPERLIPIDAEMIA
     Route: 048
  3. LOTREL [Concomitant]
     Indication: BLOOD PRESSURE
     Dosage: 5MG/10MG PILLS
     Route: 048
  4. PLAVIX [Concomitant]
     Indication: DRUG USE FOR UNKNOWN INDICATION
     Route: 048
  5. MEXITIL [Concomitant]
     Indication: DRUG USE FOR UNKNOWN INDICATION
     Route: 048
  6. NIACIN [Concomitant]
     Indication: HIGH DENSITY LIPOPROTEIN DECREASED
     Route: 048
  7. ASPIRIN [Concomitant]
     Indication: DRUG USE FOR UNKNOWN INDICATION
     Route: 048
  8. VYTORIN [Concomitant]
     Indication: BLOOD TRIGLYCERIDES INCREASED
     Route: 048
     Dates: start: 20081101

REACTIONS (3)
  - RASH [None]
  - SKIN DISCOLOURATION [None]
  - SKIN DISORDER [None]
